FAERS Safety Report 18810291 (Version 1)
Quarter: 2021Q1

REPORT INFORMATION
  Report Type: Spontaneous
  Country: US (occurrence: US)
  Receive Date: 20210129
  Receipt Date: 20210129
  Transmission Date: 20210419
  Serious: No
  Sender: FDA-Public Use
  Company Number: US-009507513-2101USA012527

PATIENT
  Age: 30 Year
  Sex: Female
  Weight: 115.51 kg

DRUGS (6)
  1. FOLLISTIM AQ [Suspect]
     Active Substance: FOLLITROPIN
     Indication: INFERTILITY FEMALE
     Dosage: 450 IU INTERNATIONAL UNIT(S), QD
     Route: 058
     Dates: start: 20210108
  2. FOLLISTIM AQ [Suspect]
     Active Substance: FOLLITROPIN
     Indication: INFERTILITY FEMALE
     Dosage: 450 IU INTERNATIONAL UNIT(S), QD
     Route: 058
     Dates: start: 202101
  3. PREDNISONE. [Concomitant]
     Active Substance: PREDNISONE
  4. GANIRELIX ACETATE INJECTION [Concomitant]
     Active Substance: GANIRELIX ACETATE
  5. FOLLISTIM AQ [Suspect]
     Active Substance: FOLLITROPIN
  6. FOLLISTIM AQ [Suspect]
     Active Substance: FOLLITROPIN

REACTIONS (1)
  - COVID-19 [Unknown]

NARRATIVE: CASE EVENT DATE: 20210114
